FAERS Safety Report 5030734-X (Version None)
Quarter: 2006Q2

REPORT INFORMATION
  Report Type: 
  Country: None (occurrence: None)
  Receive Date: 20060615
  Receipt Date: 20060605
  Transmission Date: 20061013
  Serious: Yes (Hospitalization, Other)
  Sender: FDA-Public Use
  Company Number: 2006071521

PATIENT
  Sex: Male

DRUGS (5)
  1. CAVERJECT [Suspect]
     Indication: ERECTILE DYSFUNCTION
  2. NIFEDICAL (NIFEDIPINE) [Concomitant]
  3. LOVASTATIN [Concomitant]
  4. FUROSEMIDE [Concomitant]
  5. WARFARIN (WARFARIN) [Concomitant]

REACTIONS (4)
  - BLOOD CHOLESTEROL INCREASED [None]
  - DRUG INEFFECTIVE [None]
  - PHARMACEUTICAL PRODUCT COUNTERFEIT [None]
  - PROSTATE CANCER [None]
